FAERS Safety Report 9801792 (Version 2)
Quarter: 2014Q1

REPORT INFORMATION
  Report Type: Spontaneous
  Country: FR (occurrence: FR)
  Receive Date: 20140107
  Receipt Date: 20140226
  Transmission Date: 20141002
  Serious: Yes (Hospitalization)
  Sender: FDA-Public Use
  Company Number: FR-GLAXOSMITHKLINE-B0956427A

PATIENT
  Age: 4 Year
  Sex: Male
  Weight: 15.8 kg

DRUGS (1)
  1. MALARONE JUNIOR [Suspect]
     Indication: MALARIA PROPHYLAXIS
     Dosage: 1TAB PER DAY
     Route: 048
     Dates: start: 20130701, end: 20130805

REACTIONS (8)
  - Convulsion [Recovered/Resolved]
  - Urinary incontinence [Recovered/Resolved]
  - Eye disorder [Recovered/Resolved]
  - Hypertonia [Recovered/Resolved]
  - Staring [Recovered/Resolved]
  - Oxygen saturation decreased [Recovered/Resolved]
  - Bruxism [Recovered/Resolved]
  - Aphasia [Recovered/Resolved]
